FAERS Safety Report 7603625-5 (Version None)
Quarter: 2011Q3

REPORT INFORMATION
  Report Type: 
  Country: None (occurrence: None)
  Receive Date: 20110711
  Receipt Date: 20110711
  Transmission Date: 20111222
  Serious: Yes (Other)
  Sender: FDA-Public Use
  Company Number: None

PATIENT
  Age: 32 Year
  Sex: Female
  Weight: 81.6475 kg

DRUGS (1)
  1. WARFARIN SODIUM [Suspect]
     Indication: HYPERCOAGULATION
     Dosage: SOMETIMES 9MG SOMETIMES 10MG ONCE A DAY UNK
     Dates: start: 20060501, end: 20101220

REACTIONS (9)
  - HEADACHE [None]
  - PROTHROMBIN TIME SHORTENED [None]
  - MENORRHAGIA [None]
  - MUSCULAR WEAKNESS [None]
  - INTERNATIONAL NORMALISED RATIO INCREASED [None]
  - PROTHROMBIN TIME PROLONGED [None]
  - INTERNATIONAL NORMALISED RATIO DECREASED [None]
  - INCREASED TENDENCY TO BRUISE [None]
  - HAEMORRHAGE [None]
